FAERS Safety Report 16344261 (Version 2)
Quarter: 2019Q3

REPORT INFORMATION
  Report Type: Spontaneous
  Country: US (occurrence: US)
  Receive Date: 20190522
  Receipt Date: 20190722
  Transmission Date: 20191004
  Serious: Yes (Hospitalization, Other)
  Sender: FDA-Public Use
  Company Number: US-PFIZER INC-2019217066

PATIENT
  Age: 56 Year
  Sex: Male

DRUGS (3)
  1. SUTENT [Suspect]
     Active Substance: SUNITINIB MALATE
     Dosage: 50 MG, 1X/DAY
     Dates: start: 20190417, end: 20190506
  2. SUTENT [Suspect]
     Active Substance: SUNITINIB MALATE
     Indication: RENAL CELL CARCINOMA
     Dosage: 12.5 MG, 4X/DAY
     Dates: end: 20190508
  3. SUTENT [Suspect]
     Active Substance: SUNITINIB MALATE
     Dosage: 50 MG, 1X/DAY
     Dates: start: 20190417, end: 20190506

REACTIONS (11)
  - Pruritus [Recovered/Resolved]
  - Gingival pain [Unknown]
  - Toothache [Unknown]
  - Gingival bleeding [Unknown]
  - Epistaxis [Unknown]
  - Back pain [Unknown]
  - Arthralgia [Unknown]
  - Depression [Recovered/Resolved]
  - Haemorrhage [Recovered/Resolved]
  - Oral pain [Recovered/Resolved]
  - Abdominal pain [Unknown]

NARRATIVE: CASE EVENT DATE: 20190419
